FAERS Safety Report 5003164-4 (Version None)
Quarter: 2006Q2

REPORT INFORMATION
  Report Type: 
  Country: None (occurrence: None)
  Receive Date: 20060516
  Receipt Date: 20060504
  Transmission Date: 20061013
  Serious: Yes (Hospitalization)
  Sender: FDA-Public Use
  Company Number: CH-BRISTOL-MYERS SQUIBB COMPANY-13366810

PATIENT
  Age: 95 Year
  Sex: Female

DRUGS (9)
  1. MAXIPIME [Suspect]
     Indication: PNEUMONIA BACTERIAL
     Route: 041
     Dates: start: 20050113, end: 20050118
  2. ZYVOXID [Suspect]
     Indication: PNEUMONIA BACTERIAL
     Route: 048
     Dates: start: 20050112, end: 20050122
  3. SEROPRAM [Suspect]
     Indication: AFFECTIVE DISORDER
     Route: 048
     Dates: start: 20040101, end: 20050118
  4. SPIRONOLACTONE [Concomitant]
     Indication: CARDIAC FAILURE CONGESTIVE
     Route: 048
     Dates: start: 20041223
  5. NADROPARIN CALCIUM [Concomitant]
     Route: 060
     Dates: start: 20050107
  6. PARACETAMOL [Concomitant]
     Route: 048
     Dates: start: 20050131
  7. GABAPENTIN [Concomitant]
     Indication: RESTLESSNESS
     Route: 048
     Dates: start: 20050105, end: 20050112
  8. GABAPENTIN [Concomitant]
     Indication: AGITATION
     Route: 048
     Dates: start: 20050105, end: 20050112
  9. TORSEMIDE [Concomitant]
     Indication: CARDIAC FAILURE CONGESTIVE
     Route: 048
     Dates: start: 20041223, end: 20050101

REACTIONS (4)
  - AGITATION [None]
  - COGNITIVE DETERIORATION [None]
  - ENCEPHALOPATHY [None]
  - HYPERAMMONAEMIA [None]
